FAERS Safety Report 7707839-5 (Version None)
Quarter: 2011Q3

REPORT INFORMATION
  Report Type: 
  Country: None (occurrence: None)
  Receive Date: 20110824
  Receipt Date: 20110816
  Transmission Date: 20111222
  Serious: Yes (Life-Threatening, Other)
  Sender: FDA-Public Use
  Company Number: US-ASTRAZENECA-2011SE40597

PATIENT
  Age: 60 Year
  Sex: Female
  Weight: 53.1 kg

DRUGS (3)
  1. SEROQUEL XR [Suspect]
     Indication: BIPOLAR DISORDER
     Route: 048
     Dates: start: 20050101, end: 20110101
  2. ZOLOFT [Concomitant]
     Indication: BIPOLAR DISORDER
  3. SELERA [Concomitant]
     Indication: BIPOLAR DISORDER

REACTIONS (14)
  - VOMITING [None]
  - HYPERTENSION [None]
  - ANAEMIA [None]
  - INCONTINENCE [None]
  - JOINT STIFFNESS [None]
  - MUSCULOSKELETAL STIFFNESS [None]
  - NERVE COMPRESSION [None]
  - BLOOD GLUCOSE INCREASED [None]
  - INTERVERTEBRAL DISC DISORDER [None]
  - PROLAPSE REPAIR [None]
  - INTERVERTEBRAL DISC PROTRUSION [None]
  - PARAPLEGIA [None]
  - DRUG WITHDRAWAL SYNDROME [None]
  - DRUG DOSE OMISSION [None]
